FAERS Safety Report 17350833 (Version 2)
Quarter: 2020Q3

REPORT INFORMATION
  Report Type: Report from Study
  Country: US (occurrence: US)
  Receive Date: 20200130
  Receipt Date: 20200914
  Transmission Date: 20201102
  Serious: Yes (Hospitalization, Other)
  Sender: FDA-Public Use
  Company Number: US-UCBSA-2020002590

PATIENT
  Age: 0 Year
  Sex: Male

DRUGS (22)
  1. CERTOLIZUMAB PEGOL RA [Suspect]
     Active Substance: CERTOLIZUMAB PEGOL
     Indication: CROHN^S DISEASE
  2. FOLIC ACID. [Concomitant]
     Active Substance: FOLIC ACID
     Indication: PRODUCT USED FOR UNKNOWN INDICATION
     Dosage: 5 MILLIGRAM, ONCE DAILY (QD)
     Route: 064
     Dates: start: 20181011, end: 20190714
  3. PREDNISONE. [Concomitant]
     Active Substance: PREDNISONE
     Indication: ENTHESOPATHY
     Dosage: 5 MILLIGRAM, ONCE DAILY (QD)
     Route: 064
     Dates: start: 20190710, end: 20190714
  4. SALOFALK [AMINOSALICYLIC ACID] [Concomitant]
     Active Substance: AMINOSALICYLIC ACID
     Dosage: 2000 MILLIGRAM, 2X/DAY (BID)
     Route: 064
     Dates: start: 20181101, end: 20181130
  5. SYNTHROID [Concomitant]
     Active Substance: LEVOTHYROXINE SODIUM
     Indication: HYPOTHYROIDISM
     Dosage: 0.11 MILLIGRAM, ONCE DAILY (QD)
     Route: 064
     Dates: start: 20181011, end: 20190714
  6. TYLENOL [Concomitant]
     Active Substance: ACETAMINOPHEN
     Dosage: 5 MILLIGRAM, 2X/MONTH
     Route: 064
     Dates: start: 20190515, end: 20190714
  7. INFLUENZA VACCINE [Concomitant]
     Active Substance: INFLUENZA VIRUS VACCINE
     Indication: PRODUCT USED FOR UNKNOWN INDICATION
     Dosage: 1 SHOT
     Route: 064
     Dates: start: 20190101, end: 20190101
  8. SALOFALK [AMINOSALICYLIC ACID] [Concomitant]
     Active Substance: AMINOSALICYLIC ACID
     Indication: CROHN^S DISEASE
     Dosage: 2000 MILLIGRAM, 2X/DAY (BID)
     Route: 064
     Dates: start: 20190201, end: 20190228
  9. CALCIUM MAGNESIUM [CALCIUM;MAGNESIUM] [Concomitant]
     Indication: PRODUCT USED FOR UNKNOWN INDICATION
     Dosage: 1 DOSAGE FORM, ONCE DAILY (QD)
     Route: 064
     Dates: start: 20190708, end: 20190714
  10. OMEGA 3 [FISH OIL] [Concomitant]
     Active Substance: FISH OIL
     Indication: PRODUCT USED FOR UNKNOWN INDICATION
     Dosage: 1 TEA SPOON, 2X/WEEK
     Route: 064
     Dates: start: 20181011, end: 20190717
  11. AMOXICILLIN. [Concomitant]
     Active Substance: AMOXICILLIN
     Indication: LOWER RESPIRATORY TRACT INFECTION
     Dosage: UNK
     Route: 064
     Dates: start: 20181117, end: 20181119
  12. ACETAMINOPHEN AND CODEINE [Concomitant]
     Active Substance: ACETAMINOPHEN\CODEINE PHOSPHATE
     Indication: INFECTION
  13. CAFFEINE;CODEINE PHOSPHATE;PARACETAMOL [Concomitant]
     Active Substance: ACETAMINOPHEN\CAFFEINE\CODEINE PHOSPHATE
  14. CERTOLIZUMAB PEGOL RA [Suspect]
     Active Substance: CERTOLIZUMAB PEGOL
     Indication: ANKYLOSING SPONDYLITIS
     Dosage: 400 MILLIGRAM, MONTHLY (QM)
     Route: 064
     Dates: start: 20181024, end: 20190714
  15. PRENATAL VITAMINS [MINERALS NOS;VITAMINS NOS] [Concomitant]
     Active Substance: MINERALS\VITAMINS
     Indication: PRODUCT USED FOR UNKNOWN INDICATION
     Dosage: 1 DOSAGE FORM, ONCE DAILY (QD)
     Route: 064
     Dates: start: 20181029, end: 20190515
  16. TYLENOL [Concomitant]
     Active Substance: ACETAMINOPHEN
     Indication: HEADACHE
     Dosage: 5 MILLIGRAM, 2X/DAY (BID)
     Route: 064
     Dates: start: 20190215, end: 20190514
  17. TYLENOL [Concomitant]
     Active Substance: ACETAMINOPHEN
     Dosage: 5 MILLIGRAM, 2X/WEEK
     Route: 064
     Dates: start: 20181011, end: 20190214
  18. VALACYCLOVIR [Concomitant]
     Active Substance: VALACYCLOVIR HYDROCHLORIDE
     Indication: PROPHYLAXIS
     Dosage: 400 MILLIGRAM, 3X/DAY (TID)
     Route: 064
     Dates: start: 20190307, end: 20190713
  19. VITAMIN D [VITAMIN D NOS] [Concomitant]
     Active Substance: VITAMIN D NOS
     Indication: PRODUCT USED FOR UNKNOWN INDICATION
     Dosage: 1000 INTERNATIONAL UNIT, ONCE DAILY (QD)
     Route: 064
     Dates: start: 20181011, end: 20190714
  20. ACETAMINOPHEN AND CODEINE [Concomitant]
     Active Substance: ACETAMINOPHEN\CODEINE PHOSPHATE
     Indication: GINGIVITIS
     Dosage: 600 MILLIGRAM, ONCE DAILY (QD)
     Route: 064
     Dates: start: 20190101, end: 20190101
  21. PRENATAL VITAMINS [MINERALS NOS;VITAMINS NOS] [Concomitant]
     Active Substance: MINERALS\VITAMINS
     Dosage: 1 DOSAGE FORM, ONCE DAILY (QD)
     Route: 064
     Dates: start: 20190516, end: 20190714
  22. TDAP [Concomitant]
     Active Substance: TETANUS TOXOID, REDUCED DIPHTHERIA TOXOID AND ACELLULAR PERTUSSIS VACCINE ADSORBED, TDAP
     Indication: PRODUCT USED FOR UNKNOWN INDICATION
     Dosage: ONE SHOT , ONCE DAILY (QD)
     Route: 064
     Dates: start: 20190619, end: 20190619

REACTIONS (3)
  - Anal fistula [Recovered/Resolved]
  - Maternal exposure before pregnancy [Unknown]
  - Concussion [Recovered/Resolved]

NARRATIVE: CASE EVENT DATE: 20181024
